FAERS Safety Report 7311794-X (Version None)
Quarter: 2011Q1

REPORT INFORMATION
  Report Type: 
  Country: None (occurrence: None)
  Receive Date: 20110224
  Receipt Date: 20110216
  Transmission Date: 20110831
  Serious: Yes (Other)
  Sender: FDA-Public Use
  Company Number: CA-BRISTOL-MYERS SQUIBB COMPANY-15237589

PATIENT
  Age: 44 Year
  Sex: Female

DRUGS (5)
  1. NAPROXEN [Concomitant]
  2. ENBREL [Concomitant]
     Dosage: PRIOR TO ORENCIA
  3. REACTINE [Concomitant]
     Dosage: 1DF=2TABS
  4. ORENCIA [Suspect]
     Indication: RHEUMATOID ARTHRITIS
     Dosage: RECENT DOSE:02AUG10,23DEC2010 NO OF INF:9, ONCE A MONTH THERAPY DURATION:Q2,16FEB11
     Route: 042
     Dates: start: 20100720
  5. PANTOLOC [Concomitant]

REACTIONS (7)
  - RASH [None]
  - DYSPNOEA EXERTIONAL [None]
  - PRURITUS [None]
  - NAUSEA [None]
  - HEADACHE [None]
  - INFLUENZA LIKE ILLNESS [None]
  - FATIGUE [None]
